FAERS Safety Report 5838205-5 (Version None)
Quarter: 2008Q3

REPORT INFORMATION
  Report Type: 
  Country: None (occurrence: None)
  Receive Date: 20080808
  Receipt Date: 20080730
  Transmission Date: 20090109
  Serious: Yes (Disabling)
  Sender: FDA-Public Use
  Company Number: FR-ASTRAZENECA-2008CG01156

PATIENT
  Age: 674 Month
  Sex: Male

DRUGS (4)
  1. CRESTOR [Suspect]
     Route: 048
     Dates: start: 20050501
  2. CISPLATIN [Suspect]
     Indication: RENAL CANCER
     Route: 042
     Dates: start: 20070709, end: 20071001
  3. GEMZAR [Suspect]
     Indication: RENAL CANCER
     Route: 042
     Dates: start: 20070709, end: 20071001
  4. ORELOX [Suspect]
     Indication: BACTERIAL INFECTION
     Dates: start: 20071001, end: 20071001

REACTIONS (4)
  - OPTIC ATROPHY [None]
  - PARAESTHESIA [None]
  - VISUAL ACUITY REDUCED [None]
  - VISUAL FIELD DEFECT [None]
